FAERS Safety Report 5670739-9 (Version None)
Quarter: 2008Q1

REPORT INFORMATION
  Report Type: 
  Country: None (occurrence: None)
  Receive Date: 20080318
  Receipt Date: 20080310
  Transmission Date: 20080703
  Serious: Yes (Hospitalization)
  Sender: FDA-Public Use
  Company Number: PHBS2008ES03142

PATIENT
  Age: 82 Year
  Sex: Male

DRUGS (3)
  1. STALEVO 100 [Suspect]
     Indication: PARKINSON'S DISEASE
     Dosage: 50 MG/12.5 MG/200 MG/D
     Route: 048
     Dates: start: 20070712, end: 20070818
  2. ANAFRANIL [Suspect]
     Indication: DEPRESSION
     Dosage: 10 MG/D
     Route: 048
     Dates: start: 20010101, end: 20070819
  3. AZILECT [Suspect]
     Indication: PARKINSON'S DISEASE
     Dosage: 1 MG/D
     Route: 048
     Dates: start: 20070712, end: 20070819

REACTIONS (1)
  - HEPATITIS TOXIC [None]
